FAERS Safety Report 14517660 (Version 1)
Quarter: 2018Q1

REPORT INFORMATION
  Report Type: Spontaneous
  Country: US (occurrence: US)
  Receive Date: 20180209
  Receipt Date: 20180209
  Transmission Date: 20180509
  Serious: No
  Sender: FDA-Public Use
  Company Number: None

PATIENT
  Age: 72 Year
  Sex: Male
  Weight: 86.18 kg

DRUGS (1)
  1. ERTAPENEM 1GM MERCK [Suspect]
     Active Substance: ERTAPENEM
     Indication: SEPSIS
     Route: 042
     Dates: start: 20180203, end: 20180208

REACTIONS (2)
  - Abdominal pain upper [None]
  - Hallucination [None]

NARRATIVE: CASE EVENT DATE: 20180208
